FAERS Safety Report 22101079 (Version 2)
Quarter: 2023Q2

REPORT INFORMATION
  Report Type: Report from Study
  Country: TW (occurrence: TW)
  Receive Date: 20230316
  Receipt Date: 20230403
  Transmission Date: 20230721
  Serious: Yes (Death, Other)
  Sender: FDA-Public Use
  Company Number: TW-BoehringerIngelheim-2023-BI-225199

PATIENT
  Age: 65 Year
  Sex: Male
  Weight: 66 kg

DRUGS (1)
  1. OFEV [Suspect]
     Active Substance: NINTEDANIB
     Indication: Idiopathic pulmonary fibrosis
     Route: 048
     Dates: start: 20211107

REACTIONS (1)
  - Death [Fatal]

NARRATIVE: CASE EVENT DATE: 20230219
